FAERS Safety Report 21638289 (Version 1)
Quarter: 2022Q4

REPORT INFORMATION
  Report Type: Spontaneous
  Country: US (occurrence: US)
  Receive Date: 20221124
  Receipt Date: 20221124
  Transmission Date: 20230112
  Serious: No
  Sender: FDA-Public Use
  Company Number: US-BRISTOL-MYERS SQUIBB COMPANY-2022-142311

PATIENT
  Age: 72 Year
  Sex: Female

DRUGS (1)
  1. REVLIMID [Suspect]
     Active Substance: LENALIDOMIDE
     Indication: Diffuse large B-cell lymphoma
     Route: 065

REACTIONS (8)
  - Blood potassium decreased [Unknown]
  - Blood magnesium decreased [Unknown]
  - Back pain [Unknown]
  - Pruritus [Unknown]
  - Pyrexia [Unknown]
  - Productive cough [Unknown]
  - Chills [Unknown]
  - Off label use [Unknown]
